FAERS Safety Report 5206046-8 (Version None)
Quarter: 2007Q1

REPORT INFORMATION
  Report Type: 
  Country: None (occurrence: None)
  Receive Date: 20070105
  Receipt Date: 20061219
  Transmission Date: 20070707
  Serious: Yes (Hospitalization)
  Sender: FDA-Public Use
  Company Number: GXKR2006BE08499

PATIENT
  Age: 35 Year
  Sex: Female

DRUGS (2)
  1. CLOMIPRAMINE HCL [Suspect]
     Dosage: ORAL
     Route: 048
  2. MIRTAZAPINE [Suspect]
     Dosage: ORAL
     Route: 048

REACTIONS (10)
  - ANTICHOLINERGIC SYNDROME [None]
  - BEZOAR [None]
  - ELECTROCARDIOGRAM QRS COMPLEX PROLONGED [None]
  - GRAND MAL CONVULSION [None]
  - HYPOTENSION [None]
  - INTENTIONAL OVERDOSE [None]
  - METABOLIC ACIDOSIS [None]
  - PROCEDURAL COMPLICATION [None]
  - RESPIRATORY ACIDOSIS [None]
  - SINUS TACHYCARDIA [None]
